FAERS Safety Report 4899101-3 (Version None)
Quarter: 2006Q1

REPORT INFORMATION
  Report Type: 
  Country: None (occurrence: None)
  Receive Date: 20060202
  Receipt Date: 20051212
  Transmission Date: 20060701
  Serious: Yes (Hospitalization, Other)
  Sender: FDA-Public Use
  Company Number: PHRM2005FR03285

PATIENT
  Age: 73 Year
  Sex: Male

DRUGS (3)
  1. LAMICTAL [Concomitant]
     Dosage: 125 MG/DAY
     Route: 048
  2. VOLTAREN [Suspect]
     Indication: ARTHRALGIA
     Dosage: 100 MG, ONCE2SDO
     Route: 048
     Dates: start: 20050801, end: 20050801
  3. VOLTAREN [Suspect]
     Dosage: 100 MG, BID
     Route: 048
     Dates: start: 20050802, end: 20050802

REACTIONS (9)
  - COLONIC POLYP [None]
  - DIVERTICULUM INTESTINAL [None]
  - DUODENITIS [None]
  - EROSIVE OESOPHAGITIS [None]
  - GASTRITIS [None]
  - HAEMOGLOBIN DECREASED [None]
  - MALAISE [None]
  - POLYPECTOMY [None]
  - RECTAL HAEMORRHAGE [None]
